FAERS Safety Report 9147769 (Version 3)
Quarter: 2013Q2

REPORT INFORMATION
  Report Type: Spontaneous
  Country: US (occurrence: US)
  Receive Date: 20130307
  Receipt Date: 20130403
  Transmission Date: 20140414
  Serious: Yes (Death, Hospitalization, Other)
  Sender: FDA-Public Use
  Company Number: US-PFIZER INC-2013076254

PATIENT
  Age: 16 Year
  Sex: Female

DRUGS (1)
  1. DILANTIN-125 [Suspect]
     Indication: SUICIDE ATTEMPT
     Dosage: UNK
     Route: 048

REACTIONS (12)
  - Intentional overdose [Fatal]
  - Completed suicide [Fatal]
  - Toxicity to various agents [Fatal]
  - Renal disorder [Fatal]
  - Pulmonary congestion [Fatal]
  - Brain oedema [Fatal]
  - Coma [Unknown]
  - Arrhythmia [Unknown]
  - Areflexia [Unknown]
  - Miosis [Unknown]
  - Pupillary reflex impaired [Unknown]
  - Hypotension [Unknown]
